FAERS Safety Report 16456347 (Version 2)
Quarter: 2019Q3

REPORT INFORMATION
  Report Type: Spontaneous
  Country: NL (occurrence: NL)
  Receive Date: 20190620
  Receipt Date: 20190711
  Transmission Date: 20191004
  Serious: Yes (Hospitalization)
  Sender: FDA-Public Use
  Company Number: NL-PFIZER INC-2019257591

PATIENT
  Age: 74 Year
  Sex: Male
  Weight: 96 kg

DRUGS (2)
  1. XANAX [Suspect]
     Active Substance: ALPRAZOLAM
     Indication: ALCOHOL PROBLEM
     Dosage: 1 DF, 1X/DAY
     Route: 065
  2. DIAZEPAM. [Suspect]
     Active Substance: DIAZEPAM
     Indication: ALCOHOL PROBLEM
     Dosage: 40 MG, 1X/DAY
     Route: 065

REACTIONS (13)
  - Drug ineffective for unapproved indication [Unknown]
  - Mood altered [Recovering/Resolving]
  - Suspiciousness [Recovering/Resolving]
  - Hypokinesia [Recovering/Resolving]
  - Somnolence [Recovering/Resolving]
  - Off label use [Unknown]
  - General physical health deterioration [Recovering/Resolving]
  - Personality disorder [Recovering/Resolving]
  - Irritability [Recovering/Resolving]
  - Anger [Recovering/Resolving]
  - Treatment failure [Recovering/Resolving]
  - Poor quality sleep [Recovering/Resolving]
  - Loss of personal independence in daily activities [Recovering/Resolving]

NARRATIVE: CASE EVENT DATE: 201806
